FAERS Safety Report 7648275-X (Version None)
Quarter: 2011Q3

REPORT INFORMATION
  Report Type: 
  Country: None (occurrence: None)
  Receive Date: 20110801
  Receipt Date: 20110721
  Transmission Date: 20111222
  Serious: Yes (Other)
  Sender: FDA-Public Use
  Company Number: US-BAYER-2010-007906

PATIENT
  Age: 22 Year
  Sex: Female
  Weight: 54.422 kg

DRUGS (3)
  1. ATIVAN [Concomitant]
  2. YASMIN [Suspect]
     Dosage: UNK
     Route: 048
     Dates: start: 20050821, end: 20090915
  3. DROSPIRENONE AND ETHINYL ESTRADIOL [Suspect]
     Dosage: UNK
     Dates: start: 20050101, end: 20090101

REACTIONS (7)
  - ANAL STENOSIS [None]
  - DIZZINESS [None]
  - GASTRIC ULCER [None]
  - HAEMORRHOIDS [None]
  - ANAL HAEMORRHAGE [None]
  - ULCER [None]
  - CHEST PAIN [None]
